APPROVED DRUG PRODUCT: BORTEZOMIB
Active Ingredient: BORTEZOMIB
Strength: 3.5MG/1.4ML (2.5MG/ML) **Federal Register determination that product was not discontinued or withdrawn for safety or effectiveness reasons**
Dosage Form/Route: SOLUTION;INTRAVENOUS
Application: N215441 | Product #002
Applicant: ACCORD HEALTHCARE INC
Approved: Jul 26, 2022 | RLD: Yes | RS: No | Type: DISCN